FAERS Safety Report 4803878-2 (Version None)
Quarter: 2005Q3

REPORT INFORMATION
  Report Type: 
  Country: None (occurrence: None)
  Receive Date: 20050920
  Receipt Date: 20050602
  Transmission Date: 20060218
  Serious: No
  Sender: FDA-Public Use
  Company Number: US-YAMANOUCHI-YPA20050298

PATIENT
  Age: 66 Year
  Sex: Female

DRUGS (7)
  1. VESICARE [Suspect]
     Indication: HYPERTONIC BLADDER
     Dosage: 5 MG QD PO
     Route: 048
     Dates: start: 20050501
  2. EFFEXOR [Concomitant]
  3. ACCUPRIL [Concomitant]
  4. AMARYL [Concomitant]
  5. AVANDIA [Concomitant]
  6. ZOCOR ^DICLOFENAC^ [Concomitant]
  7. ASPIRIN [Concomitant]

REACTIONS (1)
  - DRUG INEFFECTIVE [None]
